FAERS Safety Report 21719418 (Version 1)
Quarter: 2022Q4

REPORT INFORMATION
  Report Type: Spontaneous
  Country: CN (occurrence: CN)
  Receive Date: 20221213
  Receipt Date: 20221213
  Transmission Date: 20230112
  Serious: Yes (Other)
  Sender: FDA-Public Use
  Company Number: CN-NOVOPROD-988394

PATIENT
  Age: 55 Year
  Sex: Male
  Weight: 66.5 kg

DRUGS (1)
  1. INSULIN ASPART [Suspect]
     Active Substance: INSULIN ASPART
     Indication: Type 2 diabetes mellitus
     Dosage: UNK
     Dates: start: 20221125

REACTIONS (7)
  - Deafness [Unknown]
  - Sneezing [Unknown]
  - Rhinorrhoea [Unknown]
  - Dry eye [Unknown]
  - Tinnitus [Unknown]
  - Dizziness [Unknown]
  - Headache [Unknown]
